FAERS Safety Report 8707561 (Version 2)
Quarter: 2013Q4

REPORT INFORMATION
  Report Type: Spontaneous
  Country: US (occurrence: US)
  Receive Date: 20120805
  Receipt Date: 20131031
  Transmission Date: 20140711
  Serious: No
  Sender: FDA-Public Use
  Company Number: US-009507513-2012SP036520

PATIENT
  Age: 52 Year
  Sex: Female
  Weight: 69.62 kg

DRUGS (7)
  1. CLARITIN [Suspect]
     Indication: ALLERGIC SINUSITIS
     Dosage: 10 MG, QD
     Route: 048
     Dates: start: 20120430
  2. OLANZAPINE [Concomitant]
     Indication: SCHIZOPHRENIA
     Dosage: 20 MG, UNKNOWN
  3. GABAPENTIN [Concomitant]
     Indication: SLEEP DISORDER
     Dosage: 800 MG, UNKNOWN
  4. MIRTAZAPINE [Concomitant]
     Indication: SLEEP DISORDER
     Dosage: 15 MG, UNKNOWN
  5. CINNAMON [Concomitant]
     Indication: BLOOD GLUCOSE
     Dosage: 4 DF, QD
  6. CYANOCOBALAMIN [Concomitant]
     Indication: PRODUCT USED FOR UNKNOWN INDICATION
     Dosage: UNK, UNKNOWN
  7. FOLIC ACID [Concomitant]
     Indication: WHITE BLOOD CELL COUNT DECREASED
     Dosage: 3 DF, QD

REACTIONS (1)
  - Drug ineffective [Unknown]
